FAERS Safety Report 13304909 (Version 1)
Quarter: 2017Q1

REPORT INFORMATION
  Report Type: Spontaneous
  Country: US (occurrence: US)
  Receive Date: 20170307
  Receipt Date: 20170307
  Transmission Date: 20170428
  Serious: No
  Sender: FDA-Public Use
  Company Number: None

PATIENT
  Age: 67 Year
  Sex: Female
  Weight: 73.8 kg

DRUGS (7)
  1. XIIDRA [Suspect]
     Active Substance: LIFITEGRAST
     Indication: DRY EYE
     Dosage: QUANTITY:1 DROP(S);?
     Route: 047
     Dates: start: 20170307, end: 20170307
  2. LISINOPRIL. [Concomitant]
     Active Substance: LISINOPRIL
  3. ZANTAC [Concomitant]
     Active Substance: RANITIDINE HYDROCHLORIDE
  4. PROBIOTIC [Concomitant]
     Active Substance: PROBIOTICS NOS
  5. MOTRIN [Concomitant]
     Active Substance: IBUPROFEN
  6. MULTI VITAMIN [Concomitant]
     Active Substance: VITAMINS
  7. CALCIUM 600+D3 [Concomitant]
     Active Substance: CALCIUM CARBONATE\VITAMIN D

REACTIONS (2)
  - Eye irritation [None]
  - Eye pain [None]

NARRATIVE: CASE EVENT DATE: 20170307
